FAERS Safety Report 7225045-8 (Version None)
Quarter: 2011Q1

REPORT INFORMATION
  Report Type: 
  Country: None (occurrence: None)
  Receive Date: 20110113
  Receipt Date: 20101231
  Transmission Date: 20110831
  Serious: Yes (Other)
  Sender: FDA-Public Use
  Company Number: GB-WATSON-2010-16535

PATIENT
  Age: 69 Year
  Sex: Male

DRUGS (13)
  1. RAMIPRIL [Suspect]
     Indication: BLOOD PRESSURE INCREASED
     Dosage: 1 1/4 MG, DAILY
  2. BISOPROLOL [Suspect]
     Indication: BLOOD PRESSURE INCREASED
     Dosage: 1 1/4 MG, DAILY
  3. QUININE [Concomitant]
     Indication: PRODUCT USED FOR UNKNOWN INDICATION
     Dosage: UNK
  4. ISOSORBIDE DINITRATE [Concomitant]
     Indication: PRODUCT USED FOR UNKNOWN INDICATION
     Dosage: 10 MG, UNK
  5. ISOSORBIDE DINITRATE [Concomitant]
     Dosage: 20 MG, UNK
  6. OMEPRAZOLE [Concomitant]
     Indication: PRODUCT USED FOR UNKNOWN INDICATION
     Dosage: 20 MG, DAILY
  7. VENTOLIN RESPIRATOR [Concomitant]
     Indication: PRODUCT USED FOR UNKNOWN INDICATION
     Dosage: 100MCG PER ACTUATION
  8. SERETIDE                           /01420901/ [Concomitant]
     Indication: PRODUCT USED FOR UNKNOWN INDICATION
     Dosage: 500 MG, DAILY
  9. ASPIRIN [Suspect]
     Indication: MYOCARDIAL INFARCTION
  10. MELOXICAM [Suspect]
     Indication: PAIN
     Dosage: 7 1/2 MG, DAILY
     Dates: start: 20100916
  11. STEROIDS [Concomitant]
     Indication: PLEURISY
     Dosage: UNK
  12. TIOTROPIUM BROMIDE [Concomitant]
     Indication: PRODUCT USED FOR UNKNOWN INDICATION
  13. ASPIRIN [Suspect]
     Indication: CARDIAC ARREST
     Dosage: 75 MG, DAILY

REACTIONS (8)
  - DRUG INTERACTION [None]
  - EYE MOVEMENT DISORDER [None]
  - CONFUSIONAL STATE [None]
  - HALLUCINATION [None]
  - DIARRHOEA [None]
  - DELIRIUM [None]
  - DEPRESSED LEVEL OF CONSCIOUSNESS [None]
  - CHROMATURIA [None]
